FAERS Safety Report 6614747-X (Version None)
Quarter: 2010Q1

REPORT INFORMATION
  Report Type: 
  Country: None (occurrence: None)
  Receive Date: 20100304
  Receipt Date: 20100219
  Transmission Date: 20100710
  Serious: Yes (Hospitalization)
  Sender: FDA-Public Use
  Company Number: GB-RANBAXY-2010RR-31267

PATIENT
  Age: 36 Year
  Sex: Male

DRUGS (4)
  1. FLUOXETINE HCL [Suspect]
  2. ABILIFY [Suspect]
  3. ZAPONEX [Suspect]
     Dosage: UNK
     Route: 048
     Dates: start: 20100126, end: 20100206
  4. ATENOLOL [Concomitant]

REACTIONS (2)
  - OXYGEN SATURATION DECREASED [None]
  - SEDATION [None]
